FAERS Safety Report 22172969 (Version 2)
Quarter: 2023Q2

REPORT INFORMATION
  Report Type: Report from Study
  Country: CA (occurrence: CA)
  Receive Date: 20230404
  Receipt Date: 20230522
  Transmission Date: 20230721
  Serious: Yes (Hospitalization)
  Sender: FDA-Public Use
  Company Number: CA-ELI_LILLY_AND_COMPANY-CA202303017259

PATIENT
  Sex: Male

DRUGS (1)
  1. OLUMIANT [Suspect]
     Active Substance: BARICITINIB
     Indication: Rheumatoid arthritis
     Dosage: 4 MG, UNKNOWN
     Route: 048
     Dates: start: 20220122, end: 20230329

REACTIONS (4)
  - Kidney infection [Recovering/Resolving]
  - Spinal cord abscess [Recovering/Resolving]
  - Haematological infection [Recovering/Resolving]
  - Cystitis [Recovering/Resolving]
